FAERS Safety Report 9107143 (Version 1)
Quarter: 2013Q1

REPORT INFORMATION
  Report Type: Spontaneous
  Country: US (occurrence: US)
  Receive Date: 20130221
  Receipt Date: 20130221
  Transmission Date: 20140127
  Serious: No
  Sender: FDA-Public Use
  Company Number: US-009507513-1302USA008398

PATIENT
  Age: 14 Year
  Sex: Male

DRUGS (15)
  1. RALTEGRAVIR POTASSIUM [Suspect]
     Indication: URTICARIA
     Route: 048
  2. MONTELUKAST SODIUM [Suspect]
     Indication: URTICARIA
     Route: 048
  3. COUGH, COLD, AND FLU THERAPIES (UNSPECIFIED) [Concomitant]
     Indication: URTICARIA
  4. ACYCLOVIR [Concomitant]
     Indication: URTICARIA
  5. CETIRIZINE HYDROCHLORIDE [Concomitant]
     Indication: URTICARIA
  6. HYDROXYZINE [Concomitant]
     Indication: URTICARIA
  7. FEXOFENADINE HYDROCHLORIDE [Concomitant]
     Indication: URTICARIA
  8. CLEMASTINE [Concomitant]
     Indication: URTICARIA
  9. CHLORPHENIRAMINE [Concomitant]
     Indication: URTICARIA
  10. CYPROHEPTADINE HYDROCHLORIDE [Concomitant]
     Indication: URTICARIA
  11. CORTICOSTEROIDS (UNSPECIFIED) [Concomitant]
     Indication: URTICARIA
     Route: 048
  12. COLCHICINE [Concomitant]
     Indication: URTICARIA
  13. PROPRANOLOL HYDROCHLORIDE [Concomitant]
     Indication: URTICARIA
  14. DOXEPIN HYDROCHLORIDE [Concomitant]
     Indication: URTICARIA
  15. NIFEDIPINE [Concomitant]
     Indication: URTICARIA

REACTIONS (1)
  - Drug ineffective [Unknown]
